FAERS Safety Report 23792284 (Version 3)
Quarter: 2024Q4

REPORT INFORMATION
  Report Type: Report from Study
  Country: JP (occurrence: JP)
  Receive Date: 20240429
  Receipt Date: 20241004
  Transmission Date: 20250114
  Serious: Yes (Death)
  Sender: BAUSCH AND LOMB
  Company Number: JP-BAUSCH-BL-2024-006695

PATIENT
  Age: 75 Year
  Sex: Male

DRUGS (1)
  1. DEMSER [Suspect]
     Active Substance: METYROSINE
     Indication: Blood catecholamines increased
     Route: 048
     Dates: start: 20230628

REACTIONS (1)
  - Phaeochromocytoma [Fatal]

NARRATIVE: CASE EVENT DATE: 20240328
